FAERS Safety Report 6618461-6 (Version None)
Quarter: 2010Q1

REPORT INFORMATION
  Report Type: 
  Country: None (occurrence: None)
  Receive Date: 20100308
  Receipt Date: 20100226
  Transmission Date: 20100710
  Serious: No
  Sender: FDA-Public Use
  Company Number: TR-ROCHE-688935

PATIENT
  Age: 24 Year
  Sex: Female
  Weight: 50 kg

DRUGS (2)
  1. ISOTRETINOIN [Suspect]
     Indication: DRUG USE FOR UNKNOWN INDICATION
     Dosage: DOSAGE REGIMEN REPORTED: 2X1 AND 3X1.
     Route: 048
  2. ISOTRETINOIN [Suspect]
     Route: 048
     Dates: end: 20091103

REACTIONS (2)
  - NO ADVERSE EVENT [None]
  - PREGNANCY [None]
